FAERS Safety Report 8803136 (Version 3)
Quarter: 2013Q1

REPORT INFORMATION
  Report Type: Report from Study
  Country: JP (occurrence: JP)
  Receive Date: 20120924
  Receipt Date: 20130218
  Transmission Date: 20140127
  Serious: Yes (Other)
  Sender: FDA-Public Use
  Company Number: JP-009507513-1209JPN008711

PATIENT
  Age: 33 Year
  Sex: Female
  Weight: 49 kg

DRUGS (9)
  1. GANIREST SUBCUTANEOUS 0.25MG SYRINGE [Suspect]
     Indication: PREVENTION OF PREMATURE OVULATION
     Dosage: 0.25 MG, QD
     Route: 058
     Dates: start: 20120611, end: 20120613
  2. GONAPURE [Concomitant]
     Indication: IN VITRO FERTILISATION
     Dosage: 150 (UNDER 1000 UNIT), QD
     Route: 058
     Dates: start: 20120606, end: 20120611
  3. MENOTROPINS [Concomitant]
     Indication: IN VITRO FERTILISATION
     Dosage: 75 (UNDER 1000 UNIT), QD
     Route: 030
     Dates: start: 20120612, end: 20120613
  4. GONADOTROPIN, CHORIONIC [Concomitant]
     Indication: OVULATION INDUCTION
     Dosage: 10 (1000-MILLION UNIT), QD
     Route: 030
     Dates: start: 20120613, end: 20120613
  5. JULINA [Concomitant]
     Indication: IN VITRO FERTILISATION
     Dosage: 3 MG, DIVIDED DOSE FREQUENCY UNKNOWN
     Route: 048
     Dates: start: 20120724, end: 20120821
  6. JULINA [Concomitant]
     Dosage: 2 MG, DIVIDED DOSE FREQUENCY UNKNOWN
     Route: 048
     Dates: start: 20120822, end: 20120827
  7. JULINA [Concomitant]
     Dosage: 1 MG, DIVIDED DOSE FREQUENCY UNKNOWN
     Route: 048
     Dates: start: 20120828, end: 20120903
  8. ESTROGENS (UNSPECIFIED) (+) PROGESTERONE [Concomitant]
     Indication: IN VITRO FERTILISATION
     Dosage: 300 MG, DIVIDED DOSE FREQUENCY UNKNOWN, FORMULATION: EXT
     Route: 067
     Dates: start: 20120724, end: 20120903
  9. ESTROGENS (UNSPECIFIED) (+) PROGESTERONE [Concomitant]
     Dosage: 150 MG, DIVIDED DOSE FREQUENCY UNKNOWN, FORMULATION: EXT
     Route: 067
     Dates: start: 20120904, end: 20120910

REACTIONS (4)
  - Abortion missed [Recovered/Resolved]
  - Maternal exposure during pregnancy [Unknown]
  - Pregnancy [None]
  - Maternal exposure before pregnancy [None]
